FAERS Safety Report 9314125 (Version 1)
Quarter: 2013Q2

REPORT INFORMATION
  Report Type: Spontaneous
  Country: US (occurrence: None)
  Receive Date: 20130524
  Receipt Date: 20130524
  Transmission Date: 20140414
  Serious: Yes (Hospitalization)
  Sender: FDA-Public Use
  Company Number: None

PATIENT
  Age: 75 Year
  Sex: Female
  Weight: 59.7 kg

DRUGS (2)
  1. CISPLATIN [Suspect]
     Dosage: TOTAL DOSE 95 MG
  2. ETOPOSIDE (VP-16) [Suspect]
     Dosage: TOTAL DOSE 120 MG

REACTIONS (4)
  - Abdominal pain [None]
  - Neutropenia [None]
  - White blood cell count decreased [None]
  - Cellulitis [None]
